FAERS Safety Report 8474988-6 (Version None)
Quarter: 2012Q2

REPORT INFORMATION
  Report Type: 
  Country: None (occurrence: None)
  Receive Date: 20120628
  Receipt Date: 20120622
  Transmission Date: 20120825
  Serious: No
  Sender: FDA-Public Use
  Company Number: US-PFIZER INC-2012151042

PATIENT
  Age: 76 Year
  Sex: Male

DRUGS (7)
  1. CELEBREX [Suspect]
     Indication: PAIN
  2. KETOPROFEN [Suspect]
     Indication: ARTHRITIS
     Dosage: UNK
     Dates: start: 20120601, end: 20120601
  3. ENALAPRIL [Concomitant]
     Indication: BLOOD CHOLESTEROL DECREASED
     Dosage: UNK
  4. PRAVASTATIN [Concomitant]
     Dosage: UNK
  5. METFORMIN [Concomitant]
     Indication: DIABETES MELLITUS
     Dosage: UNK
  6. CELEBREX [Suspect]
     Indication: ARTHRITIS
     Dosage: 200 MG, 1X/DAY
     Route: 048
  7. KETOPROFEN [Suspect]
     Indication: PAIN

REACTIONS (7)
  - ABDOMINAL PAIN UPPER [None]
  - GASTRIC DISORDER [None]
  - FEAR [None]
  - ABDOMINAL DISCOMFORT [None]
  - THERAPEUTIC RESPONSE UNEXPECTED [None]
  - FEELING ABNORMAL [None]
  - ABDOMINAL TENDERNESS [None]
